FAERS Safety Report 4899269-9 (Version None)
Quarter: 2006Q1

REPORT INFORMATION
  Report Type: 
  Country: None (occurrence: None)
  Receive Date: 20060202
  Receipt Date: 20060126
  Transmission Date: 20060701
  Serious: Yes (Disabling)
  Sender: FDA-Public Use
  Company Number: SE-ABBOTT-06P-150-0323429-00

PATIENT
  Age: 70 Year
  Sex: Female

DRUGS (8)
  1. ERGENYL [Suspect]
     Indication: TREMOR
     Route: 048
     Dates: start: 20040101
  2. LITHIUM SULFATE [Concomitant]
     Indication: DEPRESSION
     Dates: start: 19690101
  3. CROMOLYN SODIUM [Concomitant]
     Indication: HYPERSENSITIVITY
     Route: 048
  4. EBASTINE [Concomitant]
     Indication: HYPERSENSITIVITY
  5. BECLOMETHASONE DIPROPIONATE [Concomitant]
     Indication: ASTHMA
  6. SALBUTAMOL SULFATE [Concomitant]
     Indication: ASTHMA
  7. LEVOTHYROXINE SODIUM [Concomitant]
     Indication: DRUG USE FOR UNKNOWN INDICATION
  8. DILTIAZEM HYDROCHLORIDE [Concomitant]
     Indication: DRUG USE FOR UNKNOWN INDICATION

REACTIONS (2)
  - ALOPECIA [None]
  - GAIT DISTURBANCE [None]
